FAERS Safety Report 5733565-8 (Version None)
Quarter: 2008Q2

REPORT INFORMATION
  Report Type: 
  Country: None (occurrence: None)
  Receive Date: 20080509
  Receipt Date: 20080507
  Transmission Date: 20081010
  Serious: Yes (Hospitalization)
  Sender: FDA-Public Use
  Company Number: GB-JNJFOC-20080501382

PATIENT
  Age: 46 Year
  Sex: Male

DRUGS (3)
  1. IBUPROFEN TABLETS [Suspect]
     Indication: DRUG USE FOR UNKNOWN INDICATION
     Dosage: UNKNOWN
  2. EFFEXOR [Suspect]
     Indication: DEPRESSED MOOD
     Route: 048
  3. ACETAMINOPHEN W/ CODEINE [Concomitant]
     Route: 048

REACTIONS (2)
  - ERYTHRODERMIC PSORIASIS [None]
  - PHOTOSENSITIVITY REACTION [None]
